FAERS Safety Report 8322152-3 (Version None)
Quarter: 2012Q2

REPORT INFORMATION
  Report Type: 
  Country: None (occurrence: None)
  Receive Date: 20120430
  Receipt Date: 20100511
  Transmission Date: 20120825
  Serious: No
  Sender: FDA-Public Use
  Company Number: US-TEVA-2009029900

PATIENT
  Sex: Male
  Weight: 72.64 kg

DRUGS (10)
  1. NUVIGIL [Suspect]
     Dosage: 500 MILLIGRAM;
     Dates: start: 20090101
  2. DIOVAN [Concomitant]
     Dates: start: 20070101
  3. NUVIGIL [Suspect]
     Dosage: 300 MILLIGRAM;
     Dates: start: 20090101
  4. EFFEXOR [Concomitant]
     Dates: start: 20090101
  5. NUVIGIL [Suspect]
     Dosage: 450 MILLIGRAM;
  6. NUVIGIL [Suspect]
     Indication: SLEEP APNOEA SYNDROME
     Dosage: 150 MILLIGRAM;
     Dates: start: 20091128, end: 20100113
  7. ACTOPLUS METAFORMIN [Concomitant]
     Dates: start: 20080101
  8. AMLODIPINE [Concomitant]
     Dates: start: 20090301
  9. NITRAZEPAM [Concomitant]
     Dates: start: 19800101
  10. CONCERTA [Concomitant]
     Dates: start: 20100203

REACTIONS (4)
  - DRUG TOLERANCE [None]
  - INTENTIONAL DRUG MISUSE [None]
  - DRUG PRESCRIBING ERROR [None]
  - DRUG INEFFECTIVE [None]
